FAERS Safety Report 7501272-7 (Version None)
Quarter: 2011Q2

REPORT INFORMATION
  Report Type: 
  Country: None (occurrence: None)
  Receive Date: 20110524
  Receipt Date: 20110511
  Transmission Date: 20111010
  Serious: Yes (Hospitalization)
  Sender: FDA-Public Use
  Company Number: US-UCBSA-032001

PATIENT
  Sex: Female

DRUGS (1)
  1. CIMZIA [Suspect]
     Indication: CROHN'S DISEASE
     Dosage: FORMULATION: LYO
     Route: 058
     Dates: start: 20090902, end: 20110325

REACTIONS (3)
  - DRUG DOSE OMISSION [None]
  - COLOSTOMY [None]
  - MALAISE [None]
